FAERS Safety Report 20625485 (Version 1)
Quarter: 2022Q1

REPORT INFORMATION
  Report Type: Spontaneous
  Country: US (occurrence: US)
  Receive Date: 20220323
  Receipt Date: 20220323
  Transmission Date: 20220423
  Serious: Yes (Other)
  Sender: FDA-Public Use
  Company Number: US-AMGEN-USASP2022049177

PATIENT
  Age: 45 Year
  Sex: Male

DRUGS (3)
  1. VECTIBIX [Suspect]
     Active Substance: PANITUMUMAB
     Indication: Colon cancer
     Dosage: UNK UNK, UNK
     Route: 065
     Dates: start: 20210727
  2. VECTIBIX [Suspect]
     Active Substance: PANITUMUMAB
     Dosage: 600 MILLIGRAM (ADMINISTERED ON 30DEC2021)
     Route: 065
  3. MVASI [Suspect]
     Active Substance: BEVACIZUMAB-AWWB
     Indication: Product used for unknown indication
     Dosage: UNK
     Route: 065

REACTIONS (1)
  - Colon cancer [Unknown]
